FAERS Safety Report 4430275-4 (Version None)
Quarter: 2004Q3

REPORT INFORMATION
  Report Type: 
  Country: None (occurrence: None)
  Receive Date: 20040820
  Receipt Date: 20040813
  Transmission Date: 20050211
  Serious: Yes (Life-Threatening)
  Sender: FDA-Public Use
  Company Number: FR-GLAXOSMITHKLINE-B0342470A

PATIENT
  Age: 80 Year
  Sex: Female

DRUGS (11)
  1. AUGMENTIN '125' [Suspect]
     Indication: BRONCHOPNEUMOPATHY
     Route: 048
     Dates: start: 20040601
  2. PREVISCAN [Suspect]
     Indication: ATRIAL FIBRILLATION
     Route: 048
     Dates: end: 20040603
  3. NAXY [Suspect]
     Indication: BRONCHITIS
     Route: 048
     Dates: start: 20040528, end: 20040601
  4. FUROSEMIDE [Concomitant]
     Route: 048
  5. SELOKEN LP 200 [Concomitant]
     Indication: ATRIAL FIBRILLATION
     Dosage: 1UNIT PER DAY
     Route: 048
  6. AMIODARONE HYDROCHLORIDE [Concomitant]
     Indication: ATRIAL FIBRILLATION
     Route: 048
  7. CELESTENE [Concomitant]
     Indication: BRONCHOPNEUMOPATHY
     Route: 065
  8. BRONCHOKOD [Concomitant]
     Indication: BRONCHOPNEUMOPATHY
     Route: 065
  9. SOLU-MEDROL [Concomitant]
     Indication: BRONCHOPNEUMOPATHY
     Route: 055
  10. SURBRONC [Concomitant]
     Indication: BRONCHOPNEUMOPATHY
     Route: 055
  11. BRICANYL [Concomitant]
     Indication: BRONCHOPNEUMOPATHY
     Route: 055

REACTIONS (5)
  - ABDOMINAL HAEMATOMA [None]
  - ABDOMINAL PAIN UPPER [None]
  - ANAEMIA [None]
  - DRUG INTERACTION [None]
  - RENAL FAILURE ACUTE [None]
